FAERS Safety Report 25553599 (Version 1)
Quarter: 2025Q3

REPORT INFORMATION
  Report Type: Spontaneous
  Country: US (occurrence: US)
  Receive Date: 20250715
  Receipt Date: 20250715
  Transmission Date: 20251020
  Serious: No
  Sender: ELI LILLY AND COMPANY
  Company Number: US-ELI_LILLY_AND_COMPANY-US202506022163

PATIENT
  Age: 43 Year
  Sex: Male

DRUGS (1)
  1. ZEPBOUND [Suspect]
     Active Substance: TIRZEPATIDE
     Indication: Weight control
     Dosage: UNK UNK, WEEKLY (1/W)
     Route: 065
     Dates: start: 20230404

REACTIONS (5)
  - Decreased appetite [Unknown]
  - Incorrect dose administered [Unknown]
  - Injection site erythema [Unknown]
  - Nausea [Recovered/Resolved]
  - Constipation [Recovered/Resolved]
